FAERS Safety Report 5604851-7 (Version None)
Quarter: 2008Q1

REPORT INFORMATION
  Report Type: 
  Country: None (occurrence: None)
  Receive Date: 20080128
  Receipt Date: 20080115
  Transmission Date: 20080703
  Serious: Yes (Death, Hospitalization)
  Sender: FDA-Public Use
  Company Number: US-ELI_LILLY_AND_COMPANY-US_0506118934

PATIENT
  Sex: Male
  Weight: 97.506 kg

DRUGS (1)
  1. ZYPREXA [Suspect]
     Dosage: UNK, UNK
     Dates: start: 20020517, end: 20030701

REACTIONS (4)
  - DEATH [None]
  - DIABETES MELLITUS [None]
  - HYPERTENSION [None]
  - OBESITY [None]
